FAERS Safety Report 9444412 (Version 1)
Quarter: 2013Q3

REPORT INFORMATION
  Report Type: Spontaneous
  Country: US (occurrence: None)
  Receive Date: 20130806
  Receipt Date: 20130806
  Transmission Date: 20140515
  Serious: Yes (Hospitalization)
  Sender: FDA-Public Use
  Company Number: None

PATIENT
  Age: 82 Year
  Sex: Male

DRUGS (11)
  1. ZYTIGA 250?MG JANSSEN [Suspect]
     Dosage: 1000 MG DAILY ORAL
     Route: 048
     Dates: start: 20120824
  2. PREDNISONE 5MG [Suspect]
     Dosage: 5 MG BID ORAL
     Route: 048
  3. TRAMADOL [Concomitant]
  4. LOTREL [Concomitant]
  5. ZOCOR [Concomitant]
  6. CALCIUM [Concomitant]
  7. VITAMIN D [Concomitant]
  8. COZAAR [Concomitant]
  9. CARBATROL [Concomitant]
  10. VITAMIN B12 [Concomitant]
  11. ZANAFLEX [Concomitant]

REACTIONS (2)
  - Pneumonia [None]
  - White blood cell count decreased [None]
